FAERS Safety Report 11802034 (Version 1)
Quarter: 2015Q4

REPORT INFORMATION
  Report Type: Spontaneous
  Country: SE (occurrence: SE)
  Receive Date: 20151204
  Receipt Date: 20151204
  Transmission Date: 20160305
  Serious: Yes (Other)
  Sender: FDA-Public Use
  Company Number: SE-GLAXOSMITHKLINE-SE2015GSK172654

PATIENT
  Age: 55 Year
  Sex: Female

DRUGS (1)
  1. ACITRETIN. [Suspect]
     Active Substance: ACITRETIN
     Indication: PRODUCT USED FOR UNKNOWN INDICATION
     Dosage: UNK
     Dates: start: 201410, end: 201504

REACTIONS (10)
  - Dry eye [Unknown]
  - Lip dry [Unknown]
  - Sebaceous glands overactivity [Unknown]
  - Dry mouth [Unknown]
  - Ear pain [Unknown]
  - Alopecia [Unknown]
  - Skin disorder [Unknown]
  - Mental disorder [Unknown]
  - Ear disorder [Unknown]
  - Hair disorder [Unknown]

NARRATIVE: CASE EVENT DATE: 201410
